FAERS Safety Report 5799217-3 (Version None)
Quarter: 2008Q3

REPORT INFORMATION
  Report Type: 
  Country: None (occurrence: None)
  Receive Date: 20080702
  Receipt Date: 20080620
  Transmission Date: 20090109
  Serious: Yes (Other)
  Sender: FDA-Public Use
  Company Number: US-PFIZER INC-2008047000

PATIENT
  Sex: Male
  Weight: 79.4 kg

DRUGS (8)
  1. CHANTIX [Suspect]
     Indication: SMOKING CESSATION THERAPY
     Route: 048
     Dates: start: 20080501, end: 20080601
  2. DILANTIN [Interacting]
     Indication: CONVULSION
     Route: 048
  3. NORVASC [Concomitant]
  4. KLONOPIN [Concomitant]
  5. ZYPREXA [Concomitant]
  6. LORTAB [Concomitant]
  7. TAMSULOSIN HCL [Concomitant]
  8. SOMA [Concomitant]

REACTIONS (11)
  - ABNORMAL DREAMS [None]
  - ACTIVITIES OF DAILY LIVING IMPAIRED [None]
  - DIZZINESS [None]
  - DRUG INTERACTION [None]
  - DYSSTASIA [None]
  - FALL [None]
  - FEELING DRUNK [None]
  - GAIT DISTURBANCE [None]
  - INTENTIONAL DRUG MISUSE [None]
  - MALAISE [None]
  - PHYSICAL ASSAULT [None]
